FAERS Safety Report 7598513-7 (Version None)
Quarter: 2011Q3

REPORT INFORMATION
  Report Type: 
  Country: None (occurrence: None)
  Receive Date: 20110708
  Receipt Date: 20110629
  Transmission Date: 20111222
  Serious: Yes (Hospitalization)
  Sender: FDA-Public Use
  Company Number: DE-ASTRAZENECA-2011SE35526

PATIENT
  Age: 27340 Day
  Sex: Female

DRUGS (12)
  1. HYDROCHLOROTHIAZIDE [Concomitant]
     Route: 048
  2. ALENDRONACID [Concomitant]
     Route: 048
  3. LITHIUM CARBONICUM D6 [Concomitant]
     Route: 048
  4. RAMIPRIL [Concomitant]
     Route: 048
  5. BRILIQUE [Suspect]
     Indication: ACUTE CORONARY SYNDROME
     Route: 048
     Dates: start: 20110506, end: 20110510
  6. ALLOPURINOL [Concomitant]
     Route: 048
  7. IBUPROFEN [Concomitant]
     Route: 048
  8. OSSOFORTIN FORTE [Concomitant]
     Route: 048
  9. ASPIRIN [Concomitant]
  10. BISOPROLOL FUMARATE [Concomitant]
     Route: 048
  11. TOLPERISON [Concomitant]
     Route: 048
  12. SIMVASTATIN [Concomitant]
     Route: 048

REACTIONS (4)
  - VOMITING [None]
  - HYPERTENSIVE CRISIS [None]
  - NAUSEA [None]
  - HEADACHE [None]
